FAERS Safety Report 23535490 (Version 1)
Quarter: 2024Q1

REPORT INFORMATION
  Report Type: Report from Study
  Country: MX (occurrence: None)
  Receive Date: 20240218
  Receipt Date: 20240218
  Transmission Date: 20240410
  Serious: Yes (Other)
  Sender: FDA-Public Use
  Company Number: 2024A037566

PATIENT
  Age: 26481 Day
  Sex: Female

DRUGS (4)
  1. XIGDUO XR [Suspect]
     Active Substance: DAPAGLIFLOZIN PROPANEDIOL\METFORMIN HYDROCHLORIDE
     Indication: Type 2 diabetes mellitus
     Dosage: 10/1000MG
     Route: 048
  2. ROSUVASTATIN [Suspect]
     Active Substance: ROSUVASTATIN
     Route: 048
  3. ATACAND [Suspect]
     Active Substance: CANDESARTAN CILEXETIL
     Route: 048
  4. METFORMIN HYDROCHLORIDE\VILDAGLIPTIN [Concomitant]
     Active Substance: METFORMIN HYDROCHLORIDE\VILDAGLIPTIN

REACTIONS (16)
  - Blood glucose abnormal [Unknown]
  - Inflammation [Unknown]
  - Weight fluctuation [Unknown]
  - Vertigo [Unknown]
  - Ocular hyperaemia [Unknown]
  - Dizziness [Unknown]
  - Discomfort [Unknown]
  - Asthenia [Recovered/Resolved]
  - Anxiety [Recovered/Resolved]
  - Dental caries [Recovered/Resolved]
  - Blood magnesium decreased [Unknown]
  - Hyperchlorhydria [Unknown]
  - Dyspepsia [Unknown]
  - Therapeutic response unexpected [Unknown]
  - Drug intolerance [Unknown]
  - Product dose omission issue [Unknown]
